FAERS Safety Report 7571337-2 (Version None)
Quarter: 2011Q2

REPORT INFORMATION
  Report Type: 
  Country: None (occurrence: None)
  Receive Date: 20110624
  Receipt Date: 20110614
  Transmission Date: 20111010
  Serious: Yes (Hospitalization)
  Sender: FDA-Public Use
  Company Number: B0725957A

PATIENT
  Sex: Male

DRUGS (4)
  1. GEMZAR [Suspect]
     Route: 042
     Dates: start: 20091228, end: 20110407
  2. CREON [Concomitant]
     Route: 048
  3. ARIXTRA [Suspect]
     Dosage: 1INJ PER DAY
     Route: 058
     Dates: start: 20110101, end: 20110407
  4. LEVOTHYROXINE SODIUM [Concomitant]
     Dosage: 125MCG PER DAY
     Route: 048
     Dates: start: 20040101

REACTIONS (5)
  - INCORRECT DRUG ADMINISTRATION DURATION [None]
  - THROMBOCYTOPENIA [None]
  - THROMBOTIC MICROANGIOPATHY [None]
  - ANAEMIA [None]
  - RENAL FAILURE [None]
